FAERS Safety Report 9292313 (Version 1)
Quarter: 2013Q2

REPORT INFORMATION
  Report Type: Spontaneous
  Country: PK (occurrence: PK)
  Receive Date: 20130516
  Receipt Date: 20130516
  Transmission Date: 20140414
  Serious: Yes (Death)
  Sender: FDA-Public Use
  Company Number: PHHY2013PK048438

PATIENT
  Sex: Female

DRUGS (1)
  1. VOLTRAL [Suspect]
     Route: 042

REACTIONS (1)
  - Death [Fatal]
